FAERS Safety Report 8032288 (Version 3)
Quarter: 2013Q2

REPORT INFORMATION
  Report Type: Spontaneous
  Country: None (occurrence: None)
  Receive Date: 20110615
  Receipt Date: 20130103
  Transmission Date: 20140414
  Serious: Yes (Other)
  Sender: FDA-Public Use
  Company Number: DSA_45570_2011

PATIENT
  Age: 32 Year
  Sex: Female

DRUGS (8)
  1. XENAZINE [Suspect]
     Indication: TORTICOLLIS
     Dosage: (12.5 G BID  ORAL), (12.5 MG QD ORAL), (12.5 MG BID ORAL)
     Route: 048
     Dates: start: 201102, end: 20110509
  2. CYMBALTA [Concomitant]
  3. XANAX [Concomitant]
  4. TRIHEXYPHEN [Concomitant]
  5. BACLOFEN [Concomitant]
  6. ACETAMINOPHEN W/HYDROCODONE [Concomitant]
  7. FLEXERIL [Concomitant]
  8. MULTIPLE VITAMINS [Concomitant]

REACTIONS (2)
  - SUICIDAL IDEATION [None]
  - DEPRESSION [None]
